FAERS Safety Report 8579319-9 (Version None)
Quarter: 2012Q3

REPORT INFORMATION
  Report Type: 
  Country: None (occurrence: None)
  Receive Date: 20120731
  Receipt Date: 20120731
  Transmission Date: 20120928
  Serious: Yes (Hospitalization)
  Sender: FDA-Public Use
  Company Number: None

PATIENT
  Sex: Male
  Weight: 64.4108 kg

DRUGS (2)
  1. GEMCITABINE HYDROCHLORIDE [Suspect]
     Dosage: 1000MG/M2 D1, 8, 15 Q28D
     Dates: start: 20120127, end: 20120516
  2. ERLOTINIB HYDROCHLORIDE [Suspect]
     Dosage: D 1-5, 9-12 + 16-26 Q28D
     Dates: start: 20120110, end: 20120521

REACTIONS (4)
  - PULMONARY EMBOLISM [None]
  - PANCREATIC CARCINOMA METASTATIC [None]
  - DEEP VEIN THROMBOSIS [None]
  - NEOPLASM PROGRESSION [None]
